FAERS Safety Report 10285007 (Version 1)
Quarter: 2014Q3

REPORT INFORMATION
  Report Type: Spontaneous
  Country: US (occurrence: US)
  Receive Date: 20140708
  Receipt Date: 20140708
  Transmission Date: 20150326
  Serious: Yes (Hospitalization, Other)
  Sender: FDA-Public Use
  Company Number: US-SA-2014SA087744

PATIENT
  Age: 58 Year
  Sex: Female

DRUGS (2)
  1. ENOXAPARIN SODIUM. [Suspect]
     Active Substance: ENOXAPARIN SODIUM
     Indication: THROMBOSIS
     Route: 065
     Dates: start: 201308
  2. ENOXAPARIN SODIUM. [Suspect]
     Active Substance: ENOXAPARIN SODIUM
     Indication: THROMBOSIS
     Route: 065

REACTIONS (6)
  - Ovarian cancer [Unknown]
  - Injection site bruising [Unknown]
  - Investigation [Unknown]
  - Injection site pain [Unknown]
  - Crying [Unknown]
  - Inappropriate schedule of drug administration [Unknown]
